FAERS Safety Report 14222305 (Version 1)
Quarter: 2017Q4

REPORT INFORMATION
  Report Type: Spontaneous
  Country: PL (occurrence: PL)
  Receive Date: 20171124
  Receipt Date: 20171124
  Transmission Date: 20180321
  Serious: Yes (Death, Hospitalization, Other)
  Sender: FDA-Public Use
  Company Number: PL-ABBVIE-17K-129-2174027-00

PATIENT
  Age: 69 Year
  Sex: Female

DRUGS (3)
  1. METHYPRED [Concomitant]
     Indication: PRODUCT USED FOR UNKNOWN INDICATION
  2. METHOTREXATE. [Concomitant]
     Active Substance: METHOTREXATE
     Indication: PRODUCT USED FOR UNKNOWN INDICATION
  3. HUMIRA [Suspect]
     Active Substance: ADALIMUMAB
     Indication: RHEUMATOID ARTHRITIS
     Route: 058
     Dates: start: 20160610

REACTIONS (4)
  - Pyrexia [Fatal]
  - Syncope [Fatal]
  - Aortic stent insertion [Unknown]
  - Stent-graft endoleak [Fatal]

NARRATIVE: CASE EVENT DATE: 2017
